FAERS Safety Report 7074420-3 (Version None)
Quarter: 2010Q4

REPORT INFORMATION
  Report Type: 
  Country: None (occurrence: None)
  Receive Date: 20101029
  Receipt Date: 20101020
  Transmission Date: 20110411
  Serious: Yes (Other)
  Sender: FDA-Public Use
  Company Number: JP-PFIZER INC-2010126933

PATIENT
  Sex: Male

DRUGS (3)
  1. LIPITOR [Suspect]
     Dosage: UNK
     Route: 048
  2. LAMISIL [Concomitant]
     Dosage: UNK
     Route: 048
  3. DETRUSITOL [Concomitant]
     Dosage: UNK
     Route: 048

REACTIONS (1)
  - SPERMATOZOA ABNORMAL [None]
